FAERS Safety Report 14219667 (Version 3)
Quarter: 2018Q1

REPORT INFORMATION
  Report Type: Spontaneous
  Country: US (occurrence: US)
  Receive Date: 20171123
  Receipt Date: 20180214
  Transmission Date: 20180508
  Serious: No
  Sender: FDA-Public Use
  Company Number: US-PFIZER INC-2017500024

PATIENT
  Age: 62 Year
  Sex: Male
  Weight: 87 kg

DRUGS (1)
  1. INLYTA [Suspect]
     Active Substance: AXITINIB
     Indication: RENAL CANCER METASTATIC
     Dosage: 5 MG, 2X/DAY
     Route: 048
     Dates: start: 20170728, end: 201801

REACTIONS (9)
  - Tongue discomfort [Unknown]
  - Blood sodium decreased [Unknown]
  - Pain [Unknown]
  - Neoplasm progression [Unknown]
  - Blood potassium decreased [Unknown]
  - Myalgia [Unknown]
  - Dry mouth [Unknown]
  - Oral discomfort [Unknown]
  - Blood glucose increased [Unknown]

NARRATIVE: CASE EVENT DATE: 2017
